FAERS Safety Report 9850372 (Version 1)
Quarter: 2014Q1

REPORT INFORMATION
  Report Type: Report from Study
  Country: KR (occurrence: KR)
  Receive Date: 20140128
  Receipt Date: 20140128
  Transmission Date: 20141002
  Serious: Yes (Death)
  Sender: FDA-Public Use
  Company Number: KR-BRISTOL-MYERS SQUIBB COMPANY-20071890

PATIENT
  Age: 63 Year
  Sex: Male

DRUGS (9)
  1. ORENCIA [Suspect]
     Dosage: 11OCT2013,25OCT2013,22NOV2013,20DEC2013
     Route: 042
     Dates: start: 20130927
  2. HYDROXYCHLOROQUINE [Concomitant]
     Dates: start: 20120811, end: 20130203
  3. SULFASALAZINE [Concomitant]
     Dates: start: 20120811, end: 20121022
  4. LEFLUNOMIDE [Concomitant]
     Dates: start: 20120811
  5. CYCLOSPORIN A [Concomitant]
     Dates: start: 20121023, end: 20121209
  6. METHOTREXATE [Concomitant]
     Dates: start: 20121203, end: 20130716
  7. TACROLIMUS [Concomitant]
     Dates: start: 20121217, end: 20130219
  8. ETANERCEPT [Concomitant]
     Dates: start: 20130220, end: 20130920
  9. SODIUM CHLORIDE [Concomitant]
     Dates: start: 20130924, end: 20130927

REACTIONS (1)
  - Idiopathic pulmonary fibrosis [Fatal]
